FAERS Safety Report 4465917-0 (Version None)
Quarter: 2004Q3

REPORT INFORMATION
  Report Type: 
  Country: None (occurrence: None)
  Receive Date: 20040930
  Receipt Date: 20040930
  Transmission Date: 20050211
  Serious: No
  Sender: FDA-Public Use
  Company Number: None

PATIENT

DRUGS (1)
  1. GLUCOVANCE [Suspect]
     Indication: DIABETES MELLITUS
     Dosage: 5/500 TWO PO BID 250.00
     Route: 048

REACTIONS (2)
  - DRUG TOLERANCE DECREASED [None]
  - PHARMACEUTICAL PRODUCT COMPLAINT [None]
